FAERS Safety Report 16849800 (Version 1)
Quarter: 2019Q4

REPORT INFORMATION
  Report Type: Spontaneous
  Country: US (occurrence: US)
  Receive Date: 20190925
  Receipt Date: 20190925
  Transmission Date: 20200122
  Serious: Yes (Hospitalization)
  Sender: FDA-Public Use
  Company Number: None

PATIENT
  Age: 13 Year
  Sex: Female

DRUGS (17)
  1. CREON [Concomitant]
     Active Substance: PANCRELIPASE AMYLASE\PANCRELIPASE LIPASE\PANCRELIPASE PROTEASE
  2. NAFCILLIN [Concomitant]
     Active Substance: NAFCILLIN SODIUM
  3. BACTIM [Concomitant]
  4. CETIRIZINE [Concomitant]
     Active Substance: CETIRIZINE HYDROCHLORIDE
  5. PULMOZYME [Suspect]
     Active Substance: DORNASE ALFA
     Indication: CYSTIC FIBROSIS
     Route: 055
  6. ALBUTEROL. [Concomitant]
     Active Substance: ALBUTEROL
  7. PREVACID [Concomitant]
     Active Substance: LANSOPRAZOLE
  8. FLOVENT [Concomitant]
     Active Substance: FLUTICASONE PROPIONATE
  9. AMOXICILLIN. [Concomitant]
     Active Substance: AMOXICILLIN
  10. AZITHROMYCIN ANHYDROUS. [Concomitant]
     Active Substance: AZITHROMYCIN ANHYDROUS
  11. LANSOPRAZOLE. [Concomitant]
     Active Substance: LANSOPRAZOLE
  12. ADEKS [Concomitant]
  13. CAYSTON [Concomitant]
     Active Substance: AZTREONAM
  14. DOXYCYCLINE. [Concomitant]
     Active Substance: DOXYCYCLINE
  15. SMZ/TMP DS [Concomitant]
     Active Substance: SULFAMETHOXAZOLE\TRIMETHOPRIM
  16. SOD CHLORIDE [Concomitant]
  17. VIT D3/ VIT C [Concomitant]

REACTIONS (2)
  - Lung disorder [None]
  - Condition aggravated [None]
